FAERS Safety Report 20244627 (Version 1)
Quarter: 2021Q4

REPORT INFORMATION
  Report Type: Spontaneous
  Country: US (occurrence: US)
  Receive Date: 20211229
  Receipt Date: 20211229
  Transmission Date: 20220303
  Serious: Yes (Other)
  Sender: FDA-Public Use
  Company Number: US-SPECGX-T202104270

PATIENT
  Age: 81 Year
  Sex: Female
  Weight: 52 kg

DRUGS (4)
  1. FENTANYL TRANSDERMAL SYSTEM [Suspect]
     Active Substance: FENTANYL
     Indication: Back disorder
     Dosage: 1 ON EVERY 72 HOURS
     Route: 062
     Dates: start: 202112
  2. SYNTHROID [Concomitant]
     Active Substance: LEVOTHYROXINE SODIUM
     Indication: Thyroid disorder
     Dosage: UNK
     Route: 065
  3. PROZAC [Concomitant]
     Active Substance: FLUOXETINE HYDROCHLORIDE
     Indication: Abdominal discomfort
     Dosage: UNK
     Route: 065
  4. NARCO [Concomitant]
     Indication: Pain
     Dosage: UNK
     Route: 065

REACTIONS (1)
  - Near death experience [Unknown]

NARRATIVE: CASE EVENT DATE: 20211217
